FAERS Safety Report 4400335-2 (Version None)
Quarter: 2004Q2

REPORT INFORMATION
  Report Type: 
  Country: None (occurrence: None)
  Receive Date: 20040618
  Receipt Date: 20040518
  Transmission Date: 20050107
  Serious: No
  Sender: FDA-Public Use
  Company Number: US-JNJFOC-20040504489

PATIENT
  Age: 23 Year
  Sex: Female
  Weight: 58.0604 kg

DRUGS (1)
  1. ORTHO EVRA [Suspect]
     Indication: ENDOMETRIOSIS
     Dosage: 1 DOSE(3), 3 IN 4 WEEK, TRANSDERMAL
     Route: 062
     Dates: start: 20040201

REACTIONS (4)
  - BREAST TENDERNESS [None]
  - HYPERTROPHY BREAST [None]
  - METRORRHAGIA [None]
  - NIPPLE DISORDER [None]
